FAERS Safety Report 18290592 (Version 1)
Quarter: 2020Q3

REPORT INFORMATION
  Report Type: Spontaneous
  Country: FR (occurrence: FR)
  Receive Date: 20200921
  Receipt Date: 20200921
  Transmission Date: 20201103
  Serious: Yes (Congenital Anomaly)
  Sender: FDA-Public Use
  Company Number: FR-JNJFOC-20200916278

PATIENT
  Sex: Female

DRUGS (3)
  1. REMICADE [Suspect]
     Active Substance: INFLIXIMAB
     Indication: CROHN^S DISEASE
     Route: 064
     Dates: start: 20191112
  2. PENTASA [Suspect]
     Active Substance: MESALAMINE
     Indication: CROHN^S DISEASE
     Route: 064
     Dates: start: 20191112
  3. IMUREL                             /00001501/ [Suspect]
     Active Substance: AZATHIOPRINE SODIUM
     Indication: CROHN^S DISEASE
     Route: 064
     Dates: start: 20191112

REACTIONS (3)
  - Heart disease congenital [Not Recovered/Not Resolved]
  - Foetal exposure during pregnancy [Unknown]
  - Aorta hypoplasia [Not Recovered/Not Resolved]

NARRATIVE: CASE EVENT DATE: 20191112
